FAERS Safety Report 5198690-1 (Version None)
Quarter: 2007Q1

REPORT INFORMATION
  Report Type: 
  Country: None (occurrence: None)
  Receive Date: 20070104
  Receipt Date: 20061226
  Transmission Date: 20070707
  Serious: Yes (Hospitalization)
  Sender: FDA-Public Use
  Company Number: FR-SANOFI-SYNTHELABO-A02200603332

PATIENT
  Age: 72 Year
  Sex: Female

DRUGS (7)
  1. ACARBOSE [Suspect]
     Indication: DIABETES MELLITUS
     Dosage: 150 MG
     Route: 048
  2. LASIX [Suspect]
     Indication: HYPERTENSION
     Dosage: 80 MG
     Route: 048
  3. HEMIGOXINE [Suspect]
     Indication: ATRIAL FIBRILLATION
     Route: 048
  4. HEMIGOXINE [Suspect]
     Indication: ATRIAL FLUTTER
     Route: 048
  5. OMEPRAZOLE [Suspect]
     Indication: DUODENITIS
     Route: 048
  6. GLUCOPHAGE [Suspect]
     Indication: DIABETES MELLITUS
     Route: 048
  7. KAYEXALATE [Suspect]
     Indication: DRUG USE FOR UNKNOWN INDICATION
     Dosage: 30 G
     Route: 048

REACTIONS (4)
  - HYPOGLYCAEMIA [None]
  - MALAISE [None]
  - RENAL FAILURE ACUTE [None]
  - SELF-INDUCED VOMITING [None]
